FAERS Safety Report 8378916-3 (Version None)
Quarter: 2012Q2

REPORT INFORMATION
  Report Type: 
  Country: None (occurrence: None)
  Receive Date: 20120522
  Receipt Date: 20120522
  Transmission Date: 20120825
  Serious: Yes (Life-Threatening, Hospitalization)
  Sender: FDA-Public Use
  Company Number: None

PATIENT
  Age: 78 Year
  Sex: Female
  Weight: 59.8748 kg

DRUGS (1)
  1. PRADAXA [Suspect]
     Indication: ATRIAL FIBRILLATION
     Dosage: 1-150 MGM CAP TWICE DAILY ORAL
     Route: 048
     Dates: start: 20120310, end: 20120417

REACTIONS (5)
  - LIP HAEMORRHAGE [None]
  - TRANSIENT ISCHAEMIC ATTACK [None]
  - RECTAL HAEMORRHAGE [None]
  - HAEMORRHAGE [None]
  - VAGINAL HAEMORRHAGE [None]
